FAERS Safety Report 10183419 (Version 2)
Quarter: 2014Q2

REPORT INFORMATION
  Report Type: Spontaneous
  Country: US (occurrence: US)
  Receive Date: 20140520
  Receipt Date: 20140612
  Transmission Date: 20141212
  Serious: No
  Sender: FDA-Public Use
  Company Number: US-PFIZER INC-2014135003

PATIENT
  Age: 56 Year
  Sex: Female

DRUGS (4)
  1. LYRICA [Suspect]
     Dosage: (50) 1 DF, TID
     Route: 048
  2. SERTRALINE HYDROCHLORIDE [Concomitant]
     Dosage: UNK
  3. REQUIP [Concomitant]
     Dosage: UNK
  4. FLEXERIL [Concomitant]
     Dosage: UNK

REACTIONS (1)
  - Fibromyalgia [Unknown]
